FAERS Safety Report 5516760-2 (Version None)
Quarter: 2007Q4

REPORT INFORMATION
  Report Type: 
  Country: None (occurrence: None)
  Receive Date: 20071114
  Receipt Date: 20070510
  Transmission Date: 20080405
  Serious: No
  Sender: FDA-Public Use
  Company Number: A0650585A

PATIENT
  Age: 74 Year
  Sex: Female

DRUGS (2)
  1. COMMIT [Suspect]
     Dates: start: 20070212, end: 20070509
  2. COMMIT [Suspect]

REACTIONS (2)
  - COUGH [None]
  - NICOTINE DEPENDENCE [None]
